FAERS Safety Report 24314811 (Version 1)
Quarter: 2024Q3

REPORT INFORMATION
  Report Type: Spontaneous
  Country: US (occurrence: US)
  Receive Date: 20240913
  Receipt Date: 20240913
  Transmission Date: 20241017
  Serious: Yes (Other)
  Sender: GRAVITI PHARMACEUTICALS
  Company Number: US-GRAVITIPHARMA-GRA-2408-US-LIT-0363

PATIENT
  Age: 28 Year
  Sex: Male

DRUGS (14)
  1. ATORVASTATIN CALCIUM [Suspect]
     Active Substance: ATORVASTATIN CALCIUM
     Indication: Hypertriglyceridaemia
     Route: 065
  2. ATORVASTATIN CALCIUM [Suspect]
     Active Substance: ATORVASTATIN CALCIUM
     Indication: Pancreatitis acute
  3. FENOFIBRATE [Suspect]
     Active Substance: FENOFIBRATE
     Indication: Hypertriglyceridaemia
     Route: 065
  4. FENOFIBRATE [Suspect]
     Active Substance: FENOFIBRATE
     Indication: Pancreatitis acute
  5. GEMFIBROZIL [Suspect]
     Active Substance: GEMFIBROZIL
     Indication: Hypertriglyceridaemia
     Route: 065
  6. GEMFIBROZIL [Suspect]
     Active Substance: GEMFIBROZIL
     Indication: Pancreatitis acute
  7. DEXTROSE [Suspect]
     Active Substance: DEXTROSE\DEXTROSE MONOHYDRATE
     Indication: Hypertriglyceridaemia
     Route: 065
  8. DEXTROSE [Suspect]
     Active Substance: DEXTROSE\DEXTROSE MONOHYDRATE
     Indication: Pancreatitis acute
  9. HEPARIN [Suspect]
     Active Substance: HEPARIN SODIUM
     Indication: Hypertriglyceridaemia
     Route: 065
  10. HEPARIN [Suspect]
     Active Substance: HEPARIN SODIUM
     Indication: Pancreatitis acute
  11. INSULIN NOS [Suspect]
     Active Substance: INSULIN NOS
     Indication: Hypertriglyceridaemia
     Route: 065
  12. INSULIN NOS [Suspect]
     Active Substance: INSULIN NOS
     Indication: Pancreatitis acute
  13. CALCIUM CHLORIDE\POTASSIUM CHLORIDE\SODIUM LACTATE [Suspect]
     Active Substance: CALCIUM CHLORIDE\POTASSIUM CHLORIDE\SODIUM LACTATE
     Indication: Hypertriglyceridaemia
     Route: 065
  14. CALCIUM CHLORIDE\POTASSIUM CHLORIDE\SODIUM LACTATE [Suspect]
     Active Substance: CALCIUM CHLORIDE\POTASSIUM CHLORIDE\SODIUM LACTATE
     Indication: Pancreatitis acute

REACTIONS (1)
  - Drug ineffective [Unknown]
